FAERS Safety Report 8866176 (Version 1)
Quarter: 2012Q4

REPORT INFORMATION
  Report Type: 
  Country: CA (occurrence: CA)
  Receive Date: 20121025
  Receipt Date: 20121025
  Transmission Date: 20130627
  Serious: Yes (Other)
  Sender: FDA-Public Use
  Company Number: PHHY2006CA009943

PATIENT
  Sex: Male

DRUGS (6)
  1. ZOMETA [Suspect]
     Indication: RENAL CELL CARCINOMA
     Dosage: 3.0 mg,every 4weeks
     Dates: start: 20060317
  2. ATENOLOL [Concomitant]
  3. COUMADIN [Concomitant]
  4. DIGOXIN [Concomitant]
  5. FUROSEMIDE [Concomitant]
  6. LISINOPRIL [Concomitant]

REACTIONS (7)
  - Haematoma [Unknown]
  - Blood pressure increased [Unknown]
  - Blood creatinine increased [Unknown]
  - Alopecia [Unknown]
  - Pyrexia [Unknown]
  - Blood pressure decreased [Unknown]
  - Blood calcium decreased [Unknown]
